FAERS Safety Report 4618151-5 (Version None)
Quarter: 2005Q1

REPORT INFORMATION
  Report Type: 
  Country: None (occurrence: None)
  Receive Date: 20050322
  Receipt Date: 20041129
  Transmission Date: 20050727
  Serious: Yes (Other)
  Sender: FDA-Public Use
  Company Number: 2004098648

PATIENT
  Age: 53 Year
  Sex: Female
  Weight: 113.3993 kg

DRUGS (8)
  1. CELEBREX [Suspect]
     Indication: BACK PAIN
     Dosage: 200 MG (200 MG, 1 IN 1 D), ORAL
     Route: 048
  2. POTASSIUM ACETATE [Concomitant]
  3. BUPROPION HYDROCHLORIDE [Concomitant]
  4. VALSARTAN [Concomitant]
  5. TRAZODONE HCL [Concomitant]
  6. METAXALONE [Concomitant]
  7. CYCYCLOBENZAPRINE HYDROCHLORIDE (CYCLOBENZAPRINE HYDROCHLORIDE) [Concomitant]
  8. VICODIN [Concomitant]

REACTIONS (6)
  - ABASIA [None]
  - ARTHRITIS [None]
  - BONE DISORDER [None]
  - CONDITION AGGRAVATED [None]
  - JOINT SWELLING [None]
  - TREATMENT NONCOMPLIANCE [None]
